FAERS Safety Report 9053767 (Version 1)
Quarter: 2013Q1

REPORT INFORMATION
  Report Type: Spontaneous
  Country: US (occurrence: None)
  Receive Date: 20130201
  Receipt Date: 20130201
  Transmission Date: 20140127
  Serious: Yes (Life-Threatening, Hospitalization)
  Sender: FDA-Public Use
  Company Number: None

PATIENT
  Age: 53 Year
  Sex: Female
  Weight: 72.58 kg

DRUGS (1)
  1. LATUDA 40 MG SUNOVION [Suspect]
     Indication: AFFECTIVE DISORDER
     Route: 048
     Dates: start: 20120820, end: 20130117

REACTIONS (5)
  - Abscess oral [None]
  - Gingival inflammation [None]
  - Gingival infection [None]
  - Pyrexia [None]
  - Rash [None]
